FAERS Safety Report 8019868-5 (Version None)
Quarter: 2012Q1

REPORT INFORMATION
  Report Type: 
  Country: None (occurrence: None)
  Receive Date: 20120103
  Receipt Date: 20111227
  Transmission Date: 20120608
  Serious: Yes (Other)
  Sender: FDA-Public Use
  Company Number: US-US-EMD SERONO, INC.-7103900

PATIENT
  Sex: Male

DRUGS (3)
  1. REBIF [Suspect]
     Indication: PRODUCT USED FOR UNKNOWN INDICATION
     Route: 058
     Dates: start: 20110917, end: 20111201
  2. REBIF [Suspect]
     Route: 058
     Dates: start: 20111223
  3. REBIF [Suspect]
     Route: 058
     Dates: start: 20111219, end: 20111221

REACTIONS (3)
  - HEPATIC ENZYME INCREASED [None]
  - ROTATOR CUFF REPAIR [None]
  - INJECTION SITE PAIN [None]
